FAERS Safety Report 7306676-3 (Version None)
Quarter: 2011Q1

REPORT INFORMATION
  Report Type: 
  Country: None (occurrence: None)
  Receive Date: 20110222
  Receipt Date: 20110217
  Transmission Date: 20110831
  Serious: Yes (Other)
  Sender: FDA-Public Use
  Company Number: GB-TEVA-267792ISR

PATIENT
  Sex: Female

DRUGS (2)
  1. VINORELBINE [Suspect]
     Route: 042
  2. CISPLATIN [Suspect]

REACTIONS (1)
  - BACK PAIN [None]
